FAERS Safety Report 17521920 (Version 1)
Quarter: 2020Q1

REPORT INFORMATION
  Report Type: Spontaneous
  Country: US (occurrence: US)
  Receive Date: 20200310
  Receipt Date: 20200310
  Transmission Date: 20200409
  Serious: No
  Sender: FDA-Public Use
  Company Number: US-FARMAPROD-201911-1737

PATIENT
  Sex: Female

DRUGS (2)
  1. SYNTHROID [Concomitant]
     Active Substance: LEVOTHYROXINE SODIUM
  2. OXERVATE [Suspect]
     Active Substance: CENEGERMIN-BKBJ
     Indication: NEUROTROPHIC KERATOPATHY
     Route: 047

REACTIONS (7)
  - Skin fissures [Unknown]
  - Chapped lips [Unknown]
  - Headache [Unknown]
  - Nervousness [Unknown]
  - Intraocular pressure increased [Unknown]
  - Pain in extremity [Unknown]
  - Skin discolouration [Unknown]
